FAERS Safety Report 8986360 (Version 1)
Quarter: 2012Q4

REPORT INFORMATION
  Report Type: Report from Study
  Country: ES (occurrence: ES)
  Receive Date: 20121226
  Receipt Date: 20121226
  Transmission Date: 20130627
  Serious: Yes (Death, Hospitalization)
  Sender: FDA-Public Use
  Company Number: ES-ROCHE-1168304

PATIENT
  Age: 56 Year
  Sex: Female
  Weight: 64 kg

DRUGS (5)
  1. PERTUZUMAB [Suspect]
     Indication: BREAST CANCER
     Route: 042
     Dates: start: 20111122, end: 20111122
  2. TRASTUZUMAB [Suspect]
     Indication: BREAST CANCER
     Route: 042
     Dates: start: 20111122, end: 20111122
  3. CAPECITABINE [Suspect]
     Indication: BREAST CANCER
     Dosage: 2000-0-1500
     Route: 048
     Dates: start: 20111122, end: 20111122
  4. LINEZOLID [Concomitant]
     Indication: SKIN INFECTION
     Dosage: 600 mg/12
     Route: 042
     Dates: start: 20121116, end: 20121130
  5. MEROPENEM [Concomitant]
     Dosage: 1000 mg/12
     Route: 042
     Dates: start: 20121116, end: 20121130

REACTIONS (3)
  - Sepsis [Fatal]
  - Tumour haemorrhage [Not Recovered/Not Resolved]
  - Tumour necrosis [Not Recovered/Not Resolved]
